FAERS Safety Report 6267726-9 (Version None)
Quarter: 2009Q3

REPORT INFORMATION
  Report Type: 
  Country: None (occurrence: None)
  Receive Date: 20090714
  Receipt Date: 20090709
  Transmission Date: 20100115
  Serious: Yes (Other)
  Sender: FDA-Public Use
  Company Number: PHHY2008MX31496

PATIENT
  Sex: Female

DRUGS (3)
  1. TRILEPTAL [Suspect]
     Indication: EPILEPSY
     Dosage: 1/2 TABLET (300 MG) PER DAY
     Route: 048
     Dates: start: 20081001
  2. TRILEPTAL [Suspect]
     Dosage: 300 MG, BID
     Route: 048
     Dates: start: 20081121, end: 20081121
  3. TRILEPTAL [Suspect]
     Dosage: 1/8 TABLET (300 MG) PER DAY
     Route: 048
     Dates: start: 20081121, end: 20090602

REACTIONS (6)
  - DEPRESSION [None]
  - HEADACHE [None]
  - MENSTRUAL DISORDER [None]
  - NAUSEA [None]
  - PAIN IN EXTREMITY [None]
  - VISUAL IMPAIRMENT [None]
